FAERS Safety Report 16868503 (Version 4)
Quarter: 2020Q1

REPORT INFORMATION
  Report Type: Report from Study
  Country: GB (occurrence: GB)
  Receive Date: 20190930
  Receipt Date: 20200114
  Transmission Date: 20200409
  Serious: Yes (Hospitalization, Other)
  Sender: FDA-Public Use
  Company Number: GB-EMD SERONO-9119722

PATIENT
  Age: 55 Year
  Sex: Female

DRUGS (1)
  1. REBIF [Suspect]
     Active Substance: INTERFERON BETA-1A
     Indication: MULTIPLE SCLEROSIS
     Dosage: PRE-FILLED SYRINGE
     Route: 058
     Dates: start: 2005

REACTIONS (6)
  - Intentional dose omission [Unknown]
  - Ligament sprain [Unknown]
  - Fall [Unknown]
  - Type 2 diabetes mellitus [Unknown]
  - Confusional state [Unknown]
  - Fibula fracture [Unknown]

NARRATIVE: CASE EVENT DATE: 201909
